FAERS Safety Report 4609204-6 (Version None)
Quarter: 2005Q1

REPORT INFORMATION
  Report Type: 
  Country: None (occurrence: None)
  Receive Date: 20050314
  Receipt Date: 20050309
  Transmission Date: 20050727
  Serious: Yes (Death)
  Sender: FDA-Public Use
  Company Number: 200510576GDS

PATIENT
  Sex: Male

DRUGS (1)
  1. PROFLOX  (MOXIFLOXACIN) [Suspect]
     Indication: BRONCHITIS ACUTE
     Dosage: ORAL
     Route: 048
     Dates: start: 20040101

REACTIONS (2)
  - NEUROLOGICAL SYMPTOM [None]
  - RENAL FAILURE ACUTE [None]
